FAERS Safety Report 18127110 (Version 1)
Quarter: 2020Q3

REPORT INFORMATION
  Report Type: Spontaneous
  Country: US (occurrence: US)
  Receive Date: 20200810
  Receipt Date: 20200810
  Transmission Date: 20201103
  Serious: No
  Sender: FDA-Public Use
  Company Number: US-SA-2020SA206800

PATIENT

DRUGS (1)
  1. DUPIXENT [Suspect]
     Active Substance: DUPILUMAB
     Indication: DERMATITIS ALLERGIC
     Dosage: 1 DF, QOW
     Route: 058

REACTIONS (3)
  - Eye pruritus [Recovering/Resolving]
  - Dry eye [Recovering/Resolving]
  - Lacrimation increased [Recovering/Resolving]
